FAERS Safety Report 13694649 (Version 2)
Quarter: 2017Q3

REPORT INFORMATION
  Report Type: Spontaneous
  Country: US (occurrence: US)
  Receive Date: 20170627
  Receipt Date: 20170731
  Transmission Date: 20171127
  Serious: No
  Sender: FDA-Public Use
  Company Number: US-ELI_LILLY_AND_COMPANY-US201706008546

PATIENT
  Age: 65 Year
  Sex: Male

DRUGS (22)
  1. HUMULIN R [Suspect]
     Active Substance: INSULIN HUMAN
     Dosage: 140 U, UNKNOWN
     Route: 065
     Dates: start: 20170616, end: 20170616
  2. HUMULIN R [Suspect]
     Active Substance: INSULIN HUMAN
     Dosage: 90 U, EACH MORNING
     Route: 058
  3. HUMULIN R [Suspect]
     Active Substance: INSULIN HUMAN
     Dosage: 85 U, AT SUPPER
     Route: 058
  4. HUMULIN R [Suspect]
     Active Substance: INSULIN HUMAN
     Dosage: 85 U, AT SUPPER
     Route: 058
  5. HUMULIN R [Suspect]
     Active Substance: INSULIN HUMAN
     Dosage: 123 U, UNKNOWN
     Route: 065
     Dates: start: 20170616, end: 20170616
  6. HUMULIN R [Suspect]
     Active Substance: INSULIN HUMAN
     Indication: TYPE 2 DIABETES MELLITUS
     Dosage: 75 U, EACH EVENING
     Route: 065
     Dates: start: 20170608, end: 20170608
  7. HUMULIN R [Suspect]
     Active Substance: INSULIN HUMAN
     Dosage: 100 U, BID
     Route: 065
     Dates: start: 20170609, end: 20170612
  8. HUMULIN R [Suspect]
     Active Substance: INSULIN HUMAN
     Dosage: 100 U, TID
     Route: 065
     Dates: start: 20170613, end: 20170615
  9. HUMULIN R [Suspect]
     Active Substance: INSULIN HUMAN
     Indication: DIABETES MELLITUS
     Dosage: 25 U, EACH MORNING
     Route: 065
     Dates: start: 2012, end: 20170608
  10. METFORMIN [Concomitant]
     Active Substance: METFORMIN HYDROCHLORIDE
     Indication: BLOOD GLUCOSE ABNORMAL
     Dosage: 500 MG, BID
     Route: 065
  11. METFORMIN [Concomitant]
     Active Substance: METFORMIN HYDROCHLORIDE
     Dosage: 1000 MG, BID
     Route: 065
  12. HUMULIN R [Suspect]
     Active Substance: INSULIN HUMAN
     Dosage: 150 U, BID
     Route: 058
     Dates: start: 20170617, end: 20170617
  13. HUMULIN R [Suspect]
     Active Substance: INSULIN HUMAN
     Dosage: 80 U, AT LUNCH
     Route: 058
  14. HUMULIN R [Suspect]
     Active Substance: INSULIN HUMAN
     Dosage: 90 U, EACH MORNING
     Route: 058
  15. LANTUS [Concomitant]
     Active Substance: INSULIN GLARGINE
     Dosage: 60 U, EACH EVENING
     Route: 065
     Dates: start: 2012, end: 20170608
  16. LANTUS [Concomitant]
     Active Substance: INSULIN GLARGINE
     Indication: DIABETES MELLITUS
     Dosage: 70 U, EACH MORNING
     Route: 065
     Dates: start: 2012, end: 20170608
  17. HUMULIN R [Suspect]
     Active Substance: INSULIN HUMAN
     Dosage: 135 U, UNKNOWN
     Route: 058
     Dates: start: 20170617, end: 20170617
  18. HUMULIN R [Suspect]
     Active Substance: INSULIN HUMAN
     Dosage: 150 U, TID
     Route: 058
     Dates: start: 20170618
  19. HUMULIN R [Suspect]
     Active Substance: INSULIN HUMAN
     Dosage: 30 U, OTHER (AT LUNCH)
     Route: 065
     Dates: start: 2012, end: 20170608
  20. HUMULIN R [Suspect]
     Active Substance: INSULIN HUMAN
     Dosage: 125 U, UNKNOWN
     Route: 065
     Dates: start: 20170616, end: 20170616
  21. HUMULIN R [Suspect]
     Active Substance: INSULIN HUMAN
     Dosage: 80 U, AT LUNCH
     Route: 058
  22. HUMULIN R [Suspect]
     Active Substance: INSULIN HUMAN
     Dosage: 85 U, EACH EVENING
     Route: 065
     Dates: start: 2012, end: 20170608

REACTIONS (9)
  - Blood glucose increased [Not Recovered/Not Resolved]
  - Blood glucose decreased [Recovered/Resolved]
  - Drug ineffective [Not Recovered/Not Resolved]
  - Blood glucose abnormal [Not Recovered/Not Resolved]
  - Blood glucose increased [Not Recovered/Not Resolved]
  - Blood glucose decreased [Recovered/Resolved]
  - Blood glucose fluctuation [Unknown]
  - Glycosylated haemoglobin increased [Unknown]
  - Incorrect drug administration duration [Unknown]

NARRATIVE: CASE EVENT DATE: 20170608
